FAERS Safety Report 7069056-4 (Version None)
Quarter: 2010Q4

REPORT INFORMATION
  Report Type: 
  Country: None (occurrence: None)
  Receive Date: 20101028
  Receipt Date: 20101019
  Transmission Date: 20110411
  Serious: Yes (Hospitalization)
  Sender: FDA-Public Use
  Company Number: JP-ELI_LILLY_AND_COMPANY-JP201010004065

PATIENT
  Age: 81 Year
  Sex: Male
  Weight: 46 kg

DRUGS (10)
  1. TADALAFIL [Suspect]
     Indication: PULMONARY ARTERIAL HYPERTENSION
     Dosage: 20 MG, DAILY (1/D)
     Route: 048
     Dates: start: 20100203, end: 20100206
  2. TADALAFIL [Suspect]
     Dosage: 40 MG, DAILY (1/D)
     Route: 048
     Dates: start: 20100207, end: 20100228
  3. 8-HOUR BAYER [Concomitant]
     Dosage: 100 MG, DAILY (1/D), RECEVIED BEFORE STARTING TADALAFIL
     Route: 048
  4. MUCOSOLVAN [Concomitant]
     Dosage: 45 MG, UNK, RECEVIED BEFORE STARTING TADALAFIL
     Route: 048
  5. PARIET [Concomitant]
     Dosage: 10 MG, DAILY (1/D), RECEVIED BEFORE STARTING TADALAFIL
     Route: 048
  6. PURSENNID [Concomitant]
     Dosage: 24 MG, DAILY (1/D), RECEVIED BEFORE STARTING TADALAFIL
     Route: 048
  7. PREDNISOLONE [Concomitant]
     Dosage: 10 MG, UNK, RECEVIED BEFORE STARTING TADALAFIL
     Route: 048
  8. CALONAL [Concomitant]
     Dosage: 400 MG, UNK
     Route: 048
     Dates: start: 20100301, end: 20100305
  9. SPIRIVA [Concomitant]
     Dosage: UNK, UNK, RECEVIED BEFORE STARTING TADALAFIL
     Route: 055
  10. GARENOXACIN MESILATE [Concomitant]
     Dosage: 400 MG, DAILY (1/D)
     Route: 048
     Dates: start: 20100301, end: 20100309

REACTIONS (1)
  - CARDIAC FAILURE [None]
